FAERS Safety Report 8076005-9 (Version None)
Quarter: 2012Q1

REPORT INFORMATION
  Report Type: 
  Country: None (occurrence: None)
  Receive Date: 20120127
  Receipt Date: 20110328
  Transmission Date: 20120608
  Serious: No
  Sender: FDA-Public Use
  Company Number: US-GLAXOSMITHKLINE-A0920293A

PATIENT
  Age: 48 Year
  Sex: Female

DRUGS (8)
  1. SOMA [Concomitant]
     Dates: start: 20101001
  2. WELLBUTRIN [Suspect]
     Indication: MENTAL DISORDER
     Dosage: 300MG PER DAY
     Route: 048
  3. SEROQUEL [Concomitant]
     Dates: start: 20101101
  4. ACIPHEX [Concomitant]
     Dates: start: 20090526
  5. LISINOPRIL AND HYDROCHLOROTHIAZIDE [Concomitant]
  6. XANAX [Concomitant]
  7. WELLBUTRIN SR [Suspect]
     Indication: DEPRESSION
     Dosage: 300MG PER DAY
     Route: 048
  8. CLONOPIN [Concomitant]

REACTIONS (6)
  - VOMITING [None]
  - DECREASED APPETITE [None]
  - MALAISE [None]
  - WEIGHT INCREASED [None]
  - DYSPEPSIA [None]
  - DYSPHAGIA [None]
